FAERS Safety Report 6579268-1 (Version None)
Quarter: 2010Q1

REPORT INFORMATION
  Report Type: 
  Country: None (occurrence: None)
  Receive Date: 20100212
  Receipt Date: 20100208
  Transmission Date: 20100710
  Serious: Yes (Other)
  Sender: FDA-Public Use
  Company Number: US-BAYER-200940518NA

PATIENT
  Age: 54 Year
  Sex: Male

DRUGS (1)
  1. NEXAVAR [Suspect]
     Indication: RENAL CELL CARCINOMA
     Dosage: TOTAL DAILY DOSE: 800 MG  UNIT DOSE: 200 MG
     Route: 048
     Dates: start: 20091106

REACTIONS (11)
  - ABDOMINAL PAIN UPPER [None]
  - CONSTIPATION [None]
  - DYSPHONIA [None]
  - EPISTAXIS [None]
  - GASTROINTESTINAL SOUNDS ABNORMAL [None]
  - GLOSSODYNIA [None]
  - ORAL CANDIDIASIS [None]
  - OROPHARYNGEAL PAIN [None]
  - SINUSITIS [None]
  - SWOLLEN TONGUE [None]
  - TREMOR [None]
